FAERS Safety Report 18411998 (Version 1)
Quarter: 2020Q4

REPORT INFORMATION
  Report Type: Report from Study
  Country: CA (occurrence: CA)
  Receive Date: 20201022
  Receipt Date: 20201022
  Transmission Date: 20210114
  Serious: Yes (Other)
  Sender: FDA-Public Use
  Company Number: CA-BIOGEN-2020BI00937668

PATIENT
  Sex: Female

DRUGS (1)
  1. TECFIDERA [Suspect]
     Active Substance: DIMETHYL FUMARATE
     Indication: PRODUCT USED FOR UNKNOWN INDICATION
     Dosage: MAINTENANCE DOSE
     Route: 065
     Dates: start: 20180914

REACTIONS (6)
  - Monoplegia [Unknown]
  - Balance disorder [Unknown]
  - Neurogenic bladder [Unknown]
  - Neurogenic bowel [Unknown]
  - Neuralgia [Unknown]
  - Seasonal allergy [Unknown]
